FAERS Safety Report 7576673-1 (Version None)
Quarter: 2011Q2

REPORT INFORMATION
  Report Type: 
  Country: None (occurrence: None)
  Receive Date: 20110624
  Receipt Date: 20110624
  Transmission Date: 20111010
  Serious: Yes (Other)
  Sender: FDA-Public Use
  Company Number: None

PATIENT
  Age: 41 Year
  Sex: Male

DRUGS (1)
  1. TRIZIVIR [Suspect]
     Dosage: TWICE A DAY ORALLY
     Route: 048

REACTIONS (2)
  - COLD SWEAT [None]
  - NIGHT SWEATS [None]
